FAERS Safety Report 14897466 (Version 1)
Quarter: 2018Q2

REPORT INFORMATION
  Report Type: Spontaneous
  Country: US (occurrence: US)
  Receive Date: 20180427
  Receipt Date: 20180427
  Transmission Date: 20180711
  Serious: No
  Sender: FDA-Public Use
  Company Number: None

PATIENT
  Age: 43 Year
  Sex: Female
  Weight: 65.77 kg

DRUGS (1)
  1. REMICADE [Suspect]
     Active Substance: INFLIXIMAB
     Indication: CROHN^S DISEASE
     Dosage: OTHER FREQUENCY:EVERY 6WKS;?
     Route: 042
     Dates: start: 20140807, end: 20171011

REACTIONS (4)
  - Dyspnoea [None]
  - Cough [None]
  - Lip swelling [None]
  - Infusion related reaction [None]

NARRATIVE: CASE EVENT DATE: 20171011
